FAERS Safety Report 8545115-1 (Version None)
Quarter: 2012Q3

REPORT INFORMATION
  Report Type: 
  Country: None (occurrence: None)
  Receive Date: 20120727
  Receipt Date: 20120716
  Transmission Date: 20120928
  Serious: Yes (Hospitalization, Congenital Anomaly)
  Sender: FDA-Public Use
  Company Number: US-JNJFOC-20120308533

PATIENT
  Sex: Female

DRUGS (7)
  1. MIDRIN [Suspect]
     Indication: FOETAL EXPOSURE DURING PREGNANCY
     Route: 064
  2. TOPAMAX [Suspect]
     Route: 064
  3. MIGQUIN [Suspect]
     Indication: FOETAL EXPOSURE DURING PREGNANCY
     Route: 064
     Dates: start: 20051024
  4. TOPAMAX [Suspect]
     Indication: FOETAL EXPOSURE DURING PREGNANCY
     Route: 064
  5. TOPAMAX [Suspect]
     Route: 064
     Dates: start: 20051021
  6. NITROFURANTOIN [Suspect]
     Indication: FOETAL EXPOSURE DURING PREGNANCY
     Route: 064
     Dates: start: 20051129
  7. TOPAMAX [Suspect]
     Route: 064

REACTIONS (12)
  - OPTIC NERVE HYPOPLASIA [None]
  - CRYPTOPHTHALMOS [None]
  - HEART DISEASE CONGENITAL [None]
  - ANOPHTHALMOS [None]
  - PTERYGIUM COLLI [None]
  - AMNIOTIC BAND SYNDROME [None]
  - PREMATURE BABY [None]
  - CLEFT LIP AND PALATE [None]
  - MICROPHTHALMOS [None]
  - BICUSPID AORTIC VALVE [None]
  - MATERNAL DRUGS AFFECTING FOETUS [None]
  - TONGUE DISORDER [None]
